FAERS Safety Report 8167508-7 (Version None)
Quarter: 2012Q1

REPORT INFORMATION
  Report Type: 
  Country: None (occurrence: None)
  Receive Date: 20120227
  Receipt Date: 20120223
  Transmission Date: 20120608
  Serious: Yes (Life-Threatening, Hospitalization)
  Sender: FDA-Public Use
  Company Number: AE-ROCHE-1043231

PATIENT
  Sex: Male
  Weight: 69.053 kg

DRUGS (6)
  1. SINGULAIR [Concomitant]
  2. XOLAIR [Suspect]
     Indication: PRODUCT USED FOR UNKNOWN INDICATION
     Route: 058
     Dates: start: 20090803
  3. XOLAIR [Suspect]
     Dates: start: 20110127
  4. FLUTICASONE PROPIONATE/SALMETEROL [Concomitant]
  5. SPIRIVA [Concomitant]
  6. PREDNISOLONE [Concomitant]

REACTIONS (1)
  - ANAPHYLACTIC SHOCK [None]
